FAERS Safety Report 20144201 (Version 1)
Quarter: 2021Q4

REPORT INFORMATION
  Report Type: Spontaneous
  Country: CN (occurrence: None)
  Receive Date: 20211203
  Receipt Date: 20211203
  Transmission Date: 20220303
  Serious: Yes (Other)
  Sender: FDA-Public Use
  Company Number: CN-ROCHE-2965102

PATIENT
  Age: 64 Year
  Sex: Male

DRUGS (4)
  1. TECENTRIQ [Suspect]
     Active Substance: ATEZOLIZUMAB
     Indication: Metastatic bronchial carcinoma
     Route: 065
     Dates: start: 20200912
  2. TECENTRIQ [Suspect]
     Active Substance: ATEZOLIZUMAB
     Route: 065
     Dates: start: 20210122
  3. ETOPOSIDE [Concomitant]
     Active Substance: ETOPOSIDE
     Indication: Metastatic bronchial carcinoma
     Dosage: ON DAY 1-3
     Dates: start: 20200912
  4. CARBOPLATIN [Concomitant]
     Active Substance: CARBOPLATIN
     Indication: Metastatic bronchial carcinoma
     Dosage: AUC=5 MG/ML
     Dates: start: 20200912

REACTIONS (2)
  - Gastrointestinal disorder [Unknown]
  - Myelosuppression [Unknown]
